FAERS Safety Report 12231092 (Version 4)
Quarter: 2016Q3

REPORT INFORMATION
  Report Type: Report from Study
  Country: GB (occurrence: GB)
  Receive Date: 20160401
  Receipt Date: 20160925
  Transmission Date: 20161109
  Serious: Yes (Life-Threatening, Hospitalization, Other)
  Sender: FDA-Public Use
  Company Number: PHHY2016GB023623

PATIENT
  Age: 14 Year
  Sex: Male

DRUGS (5)
  1. BLINDED PLACEBO [Suspect]
     Active Substance: INVESTIGATIONAL PRODUCT
     Indication: EPILEPSY
     Dosage: CODE NOT BROKEN
     Route: 048
     Dates: start: 20141114, end: 20141130
  2. CLOBAZAM [Concomitant]
     Active Substance: CLOBAZAM
     Indication: PRODUCT USED FOR UNKNOWN INDICATION
     Route: 065
  3. RAD001 [Suspect]
     Active Substance: EVEROLIMUS
     Indication: EPILEPSY
     Dosage: 12 MG, QD
     Route: 048
     Dates: start: 20150323, end: 20160210
  4. BLINDED NO TREATMENT RECEIVED [Suspect]
     Active Substance: INVESTIGATIONAL PRODUCT
     Indication: EPILEPSY
     Dosage: CODE NOT BROKEN
     Route: 048
     Dates: start: 20141114, end: 20141130
  5. AFINITOR [Suspect]
     Active Substance: EVEROLIMUS
     Indication: EPILEPSY
     Dosage: CODE NOT BROKEN
     Route: 048
     Dates: start: 20141114, end: 20141130

REACTIONS (7)
  - Septic shock [Recovering/Resolving]
  - Seizure [Recovered/Resolved]
  - Gastric ileus [Recovered/Resolved]
  - Cardiac arrest [Recovered/Resolved]
  - Abdominal distension [Recovered/Resolved]
  - Intestinal ischaemia [Recovered/Resolved with Sequelae]
  - Constipation [Unknown]

NARRATIVE: CASE EVENT DATE: 20160210
